FAERS Safety Report 21692465 (Version 1)
Quarter: 2022Q4

REPORT INFORMATION
  Report Type: Spontaneous
  Country: US (occurrence: US)
  Receive Date: 20221207
  Receipt Date: 20221207
  Transmission Date: 20230113
  Serious: Yes (Other)
  Sender: FDA-Public Use
  Company Number: US-PFIZER INC-PV202200114400

PATIENT
  Age: 42 Year
  Sex: Female

DRUGS (10)
  1. DOCETAXEL [Suspect]
     Active Substance: DOCETAXEL
     Indication: Metastases to central nervous system
     Dosage: UNK
     Dates: start: 2016, end: 2018
  2. GEMCITABINE HYDROCHLORIDE [Suspect]
     Active Substance: GEMCITABINE HYDROCHLORIDE
     Indication: Metastases to central nervous system
     Dosage: UNK
     Dates: start: 2016, end: 202101
  3. TOPOTECAN HYDROCHLORIDE [Suspect]
     Active Substance: TOPOTECAN HYDROCHLORIDE
     Indication: Metastases to central nervous system
     Dosage: UNK
     Dates: start: 2018
  4. DOXORUBICIN HYDROCHLORIDE [Suspect]
     Active Substance: DOXORUBICIN HYDROCHLORIDE
     Indication: Metastases to central nervous system
     Dosage: UNK
     Dates: start: 2018
  5. PAZOPANIB [Suspect]
     Active Substance: PAZOPANIB
     Indication: Metastases to central nervous system
     Dosage: UNK
     Dates: start: 2018
  6. OLARATUMAB [Suspect]
     Active Substance: OLARATUMAB
     Indication: Metastases to central nervous system
     Dosage: UNK
     Dates: start: 2018
  7. TRABECTEDIN [Suspect]
     Active Substance: TRABECTEDIN
     Indication: Metastases to central nervous system
     Dosage: UNK
     Dates: start: 2018
  8. ERIBULIN [Suspect]
     Active Substance: ERIBULIN
     Indication: Metastases to central nervous system
     Dosage: UNK
     Dates: start: 2019
  9. TEMOZOLOMIDE [Suspect]
     Active Substance: TEMOZOLOMIDE
     Indication: Metastases to central nervous system
     Dosage: UNK
     Dates: start: 2019, end: 2020
  10. PEMBROLIZUMAB [Suspect]
     Active Substance: PEMBROLIZUMAB
     Indication: Metastases to central nervous system
     Dosage: UNK
     Dates: start: 2020

REACTIONS (3)
  - Renal failure [Unknown]
  - Rhabdomyolysis [Unknown]
  - Drug reaction with eosinophilia and systemic symptoms [Unknown]
